FAERS Safety Report 18441286 (Version 2)
Quarter: 2020Q4

REPORT INFORMATION
  Report Type: Report from Study
  Country: KR (occurrence: KR)
  Receive Date: 20201029
  Receipt Date: 20201112
  Transmission Date: 20210114
  Serious: Yes (Other)
  Sender: FDA-Public Use
  Company Number: KR-ASTRAZENECA-2020SF39090

PATIENT
  Sex: Male

DRUGS (3)
  1. CARBOPLATIN. [Concomitant]
     Active Substance: CARBOPLATIN
     Dosage: DOSE UNKNOWN, WEEKLY
     Route: 065
  2. IMFINZI [Suspect]
     Active Substance: DURVALUMAB
     Indication: DRUG THERAPY
     Route: 042
  3. PACLITAXEL. [Concomitant]
     Active Substance: PACLITAXEL
     Dosage: DOSE UNKNOWN, WEEKLY
     Route: 065

REACTIONS (6)
  - Immune-mediated pneumonitis [Recovering/Resolving]
  - Dyspnoea exertional [Recovering/Resolving]
  - Pyrexia [Unknown]
  - Radiation pneumonitis [Recovering/Resolving]
  - Productive cough [Recovering/Resolving]
  - Cough [Recovering/Resolving]
